FAERS Safety Report 8313403-X (Version None)
Quarter: 2012Q2

REPORT INFORMATION
  Report Type: 
  Country: None (occurrence: None)
  Receive Date: 20120425
  Receipt Date: 20120425
  Transmission Date: 20120825
  Serious: No
  Sender: FDA-Public Use
  Company Number: None

PATIENT
  Age: 67 Year
  Sex: Male
  Weight: 104.3273 kg

DRUGS (2)
  1. CYMBALTA [Suspect]
     Indication: NEUROPATHY PERIPHERAL
     Dosage: 30MG ONCE DAILY : 60MG ONCE DAILY
     Dates: start: 20120325, end: 20120330
  2. CYMBALTA [Suspect]
     Indication: NEUROPATHY PERIPHERAL
     Dosage: 30MG ONCE DAILY : 60MG ONCE DAILY
     Dates: start: 20120320, end: 20120324

REACTIONS (6)
  - NAUSEA [None]
  - DEPRESSION [None]
  - MALAISE [None]
  - INFLUENZA LIKE ILLNESS [None]
  - ABDOMINAL DISCOMFORT [None]
  - ASTHENIA [None]
